FAERS Safety Report 11230982 (Version 1)
Quarter: 2015Q2

REPORT INFORMATION
  Report Type: Spontaneous
  Country: GB (occurrence: None)
  Receive Date: 20150629
  Receipt Date: 20150629
  Transmission Date: 20150821
  Serious: Yes (Other)
  Sender: FDA-Public Use
  Company Number: 2014RR-85296

PATIENT
  Age: 63 Year
  Sex: Male
  Weight: 70 kg

DRUGS (8)
  1. MOMETASONE [Concomitant]
     Active Substance: MOMETASONE
  2. CO-AMOXICLAV (AMOXICILLIN, CLAVULANIC ACID) TABLET [Suspect]
     Active Substance: AMOXICILLIN\CLAVULANIC ACID
     Indication: PRODUCT USED FOR UNKNOWN INDICATION
     Dosage: 50/125 MCG
     Route: 048
     Dates: start: 20140826
  3. AMOXICILLIN. [Concomitant]
     Active Substance: AMOXICILLIN
  4. NASAL DROPS [Concomitant]
  5. CHLORPHENAMINE [Concomitant]
     Active Substance: CHLORPHENIRAMINE MALEATE
  6. PULMICORT TURBUHALER [Concomitant]
     Active Substance: BUDESONIDE
  7. BECLOMETASONE [Concomitant]
     Active Substance: BECLOMETHASONE DIPROPIONATE
  8. QVAR (BECLOMETASONE DIPROPIONATE) [Concomitant]

REACTIONS (1)
  - Anxiety [None]

NARRATIVE: CASE EVENT DATE: 20140828
